FAERS Safety Report 9316395 (Version 1)
Quarter: 2012Q4

REPORT INFORMATION
  Report Type: Spontaneous
  Country: US (occurrence: None)
  Receive Date: 20121115
  Receipt Date: 20121115
  Transmission Date: 20130627
  Serious: Yes (Death)
  Sender: FDA-Public Use
  Company Number: HA10-221-AE

PATIENT
  Age: 58 Year
  Sex: Male
  Weight: 84 kg

DRUGS (7)
  1. NAPROXEN [Suspect]
     Indication: ARTHRITIS
     Route: 048
     Dates: start: 20080801, end: 20100828
  2. CELECOXIB,IBUPROFEN,NAPROXEN,PLACEBO [Suspect]
     Route: 048
     Dates: start: 20080801, end: 20100828
  3. NEXIUM [Concomitant]
  4. ENALAPRIL [Concomitant]
  5. METFORMIN [Concomitant]
  6. GLIBENCLAMIDE [Concomitant]
  7. ASPIRIN [Concomitant]

REACTIONS (7)
  - Vomiting [None]
  - Dizziness [None]
  - Epistaxis [None]
  - Headache [None]
  - Respiratory failure [None]
  - Syncope [None]
  - Cerebrovascular accident [None]
